FAERS Safety Report 8810274 (Version 1)
Quarter: 2012Q4

REPORT INFORMATION
  Report Type: 
  Country: US (occurrence: US)
  Receive Date: 20120926
  Receipt Date: 20120926
  Transmission Date: 20130627
  Serious: No
  Sender: FDA-Public Use
  Company Number: US-009507513-2011SP007704

PATIENT
  Age: 56 Year
  Sex: Female

DRUGS (5)
  1. SAPHRIS [Suspect]
     Route: 048
  2. GABAPENTIN [Suspect]
     Indication: PRODUCT USED FOR UNKNOWN INDICATION
     Route: 048
  3. ZONISAMIDE [Suspect]
     Route: 048
  4. LANTUS [Concomitant]
     Route: 058
  5. OXYCODONE [Concomitant]
     Route: 048

REACTIONS (5)
  - Blood glucose fluctuation [Unknown]
  - Coordination abnormal [Unknown]
  - Disturbance in attention [Unknown]
  - Balance disorder [Unknown]
  - Fatigue [Unknown]
